FAERS Safety Report 8438811-8 (Version None)
Quarter: 2012Q2

REPORT INFORMATION
  Report Type: 
  Country: None (occurrence: None)
  Receive Date: 20120608
  Receipt Date: 20120525
  Transmission Date: 20120825
  Serious: Yes (Other)
  Sender: FDA-Public Use
  Company Number: US-1183773

PATIENT
  Age: 73 Year
  Sex: Male
  Weight: 72.5755 kg

DRUGS (10)
  1. DIOVAN [Concomitant]
  2. HYDROCHLOROTHIAZIDE [Concomitant]
  3. PATANASE [Suspect]
     Indication: TINNITUS
     Dosage: (2 UG BID NASAL)
     Route: 045
     Dates: start: 20101014, end: 20101016
  4. PATANASE [Suspect]
     Indication: UPPER AIRWAY OBSTRUCTION
     Dosage: (2 UG BID NASAL)
     Route: 045
     Dates: start: 20101014, end: 20101016
  5. SIMVASTATIN [Concomitant]
  6. METFORMIN HCL [Concomitant]
  7. LANTUS [Concomitant]
  8. STARLIX [Concomitant]
  9. ASPIRIN [Concomitant]
  10. MULTI-VITAMIN [Concomitant]

REACTIONS (1)
  - CHEST PAIN [None]
